FAERS Safety Report 7003899-8 (Version None)
Quarter: 2010Q3

REPORT INFORMATION
  Report Type: 
  Country: None (occurrence: None)
  Receive Date: 20100920
  Receipt Date: 20100104
  Transmission Date: 20110219
  Serious: No
  Sender: FDA-Public Use
  Company Number: US-WYE-H12841110

PATIENT
  Sex: Female
  Weight: 68.1 kg

DRUGS (3)
  1. PROTONIX [Suspect]
     Indication: GASTROOESOPHAGEAL REFLUX DISEASE
     Route: 048
     Dates: start: 20091230
  2. XANAX [Concomitant]
  3. SIMVASTATIN [Concomitant]

REACTIONS (7)
  - ABDOMINAL DISTENSION [None]
  - ANXIETY [None]
  - CHEST DISCOMFORT [None]
  - CONDITION AGGRAVATED [None]
  - ERUCTATION [None]
  - FLATULENCE [None]
  - NERVOUSNESS [None]
